FAERS Safety Report 8476768-4 (Version None)
Quarter: 2012Q2

REPORT INFORMATION
  Report Type: 
  Country: None (occurrence: None)
  Receive Date: 20120628
  Receipt Date: 20120621
  Transmission Date: 20120825
  Serious: Yes (Hospitalization)
  Sender: FDA-Public Use
  Company Number: US-MERCK-1007USA00035

PATIENT
  Age: 60 Year
  Sex: Male

DRUGS (4)
  1. SINGULAIR [Suspect]
     Indication: ASTHMA
     Route: 048
     Dates: start: 20090601, end: 20100630
  2. ADVAIR DISKUS 100/50 [Concomitant]
     Route: 065
  3. ATROVENT [Concomitant]
     Route: 065
     Dates: start: 20120101
  4. SINGULAIR [Suspect]
     Route: 048
     Dates: start: 20120601

REACTIONS (4)
  - ADVERSE EVENT [None]
  - DRUG INEFFECTIVE [None]
  - RASH PRURITIC [None]
  - OVERDOSE [None]
